FAERS Safety Report 6710097-1 (Version None)
Quarter: 2010Q2

REPORT INFORMATION
  Report Type: 
  Country: None (occurrence: None)
  Receive Date: 20100430
  Receipt Date: 20100414
  Transmission Date: 20101027
  Serious: Yes (Other)
  Sender: FDA-Public Use
  Company Number: 010245

PATIENT
  Sex: Female
  Weight: 50.3 kg

DRUGS (5)
  1. CIMZIA [Suspect]
     Indication: CROHN'S DISEASE
     Dosage: SUBCUTANEOUS
     Route: 058
     Dates: start: 20081101
  2. ENEMAS [Concomitant]
  3. ASACOL [Concomitant]
  4. OMEPRAZOLE [Concomitant]
  5. LACTAID [Concomitant]

REACTIONS (1)
  - PSORIASIS [None]
